FAERS Safety Report 7492189-5 (Version None)
Quarter: 2011Q2

REPORT INFORMATION
  Report Type: 
  Country: None (occurrence: None)
  Receive Date: 20110519
  Receipt Date: 20101022
  Transmission Date: 20111010
  Serious: No
  Sender: FDA-Public Use
  Company Number: US-NOVEN-ALL1-2010-05522

PATIENT
  Sex: Male
  Weight: 29.478 kg

DRUGS (3)
  1. DAYTRANA [Suspect]
     Dosage: 15 MG, 1X/DAY:QD
     Route: 062
     Dates: start: 20100801, end: 20100901
  2. HYDROXYZINE PAM [Concomitant]
     Dosage: UNK MG, 1X/DAY:QD (1 OR 2 25 MG TABLETS AT NIGHT)
     Route: 048
     Dates: start: 20100801
  3. DAYTRANA [Suspect]
     Dosage: 20 MG, 1X/DAY:QD
     Route: 062
     Dates: start: 20100901

REACTIONS (6)
  - APPLICATION SITE PRURITUS [None]
  - EDUCATIONAL PROBLEM [None]
  - APPLICATION SITE PAIN [None]
  - APPLICATION SITE ERYTHEMA [None]
  - DRUG ADMINISTERED AT INAPPROPRIATE SITE [None]
  - APPLICATION SITE SWELLING [None]
